FAERS Safety Report 5031430-5 (Version None)
Quarter: 2006Q2

REPORT INFORMATION
  Report Type: 
  Country: None (occurrence: None)
  Receive Date: 20060504
  Receipt Date: 20051123
  Transmission Date: 20061013
  Serious: Yes (Hospitalization)
  Sender: FDA-Public Use
  Company Number: SGB1-2005-00553

PATIENT
  Age: 63 Year
  Sex: Female

DRUGS (6)
  1. ANAGRELIDE HCL [Suspect]
     Indication: ESSENTIAL THROMBOCYTHAEMIA
     Dosage: 0.5 MG
     Dates: start: 20050621, end: 20050927
  2. GINKOR (TROXERUTIN, GINKGO BILOBA EXTRACT) [Concomitant]
  3. VASTAREL (TRIMETAZIDINE HYDROCHLORIDE) [Concomitant]
  4. LEXOMIL (BROMAZEPAM) [Concomitant]
  5. KARDEGIC /00002703/ (ACETYLSALICYLIC LYSINE) [Concomitant]
  6. HYDREA [Concomitant]

REACTIONS (4)
  - COUGH [None]
  - DYSPNOEA [None]
  - OEDEMA PERIPHERAL [None]
  - PALPITATIONS [None]
